FAERS Safety Report 5805664-3 (Version None)
Quarter: 2008Q3

REPORT INFORMATION
  Report Type: 
  Country: None (occurrence: None)
  Receive Date: 20080710
  Receipt Date: 20080505
  Transmission Date: 20090109
  Serious: No
  Sender: FDA-Public Use
  Company Number: A0726196A

PATIENT
  Sex: Female

DRUGS (13)
  1. TYKERB [Suspect]
     Indication: BREAST CANCER
     Dosage: 250MG FIVE TIMES PER DAY
     Route: 048
     Dates: start: 20080416
  2. OXYCONTIN [Concomitant]
  3. ACIPHEX [Concomitant]
  4. WELLBUTRIN XL [Concomitant]
  5. TAPAZOLE [Concomitant]
  6. PROVIGIL [Concomitant]
  7. COREG [Concomitant]
  8. HYDROCODONE [Concomitant]
  9. ZOFRAN [Concomitant]
  10. ZOMETA [Concomitant]
  11. VITAMIN B-12 [Concomitant]
  12. COUMADIN [Concomitant]
  13. XELODA [Concomitant]
     Route: 048

REACTIONS (2)
  - DIARRHOEA [None]
  - PYREXIA [None]
